FAERS Safety Report 20074666 (Version 1)
Quarter: 2021Q4

REPORT INFORMATION
  Report Type: Spontaneous
  Country: FR (occurrence: FR)
  Receive Date: 20211116
  Receipt Date: 20211116
  Transmission Date: 20220304
  Serious: Yes (Death)
  Sender: FDA-Public Use
  Company Number: FR-ROCHE-2894506

PATIENT
  Age: 73 Year
  Sex: Male

DRUGS (4)
  1. MIDAZOLAM [Suspect]
     Active Substance: MIDAZOLAM
     Indication: Product used for unknown indication
     Dosage: UNK
     Route: 065
  2. KEPPRA [Suspect]
     Active Substance: LEVETIRACETAM
     Indication: Product used for unknown indication
     Dosage: UNK
     Route: 065
  3. VALIUM [Suspect]
     Active Substance: DIAZEPAM
     Indication: Anxiety
     Dosage: 10 MILLIGRAM
     Route: 042
     Dates: start: 20210715
  4. VALIUM [Suspect]
     Active Substance: DIAZEPAM
     Indication: Seizure

REACTIONS (4)
  - Coma [Fatal]
  - Hypotension [Fatal]
  - Cardiac arrest [Fatal]
  - Respiratory distress [Fatal]

NARRATIVE: CASE EVENT DATE: 20210715
